FAERS Safety Report 6182683-1 (Version None)
Quarter: 2009Q2

REPORT INFORMATION
  Report Type: 
  Country: None (occurrence: None)
  Receive Date: 20090507
  Receipt Date: 20090430
  Transmission Date: 20091009
  Serious: Yes (Death, Hospitalization)
  Sender: FDA-Public Use
  Company Number: A0782815A

PATIENT
  Sex: Male

DRUGS (1)
  1. SERETIDE [Suspect]
     Dosage: 1PUFF TWICE PER DAY
     Route: 055
     Dates: start: 20090101, end: 20090406

REACTIONS (4)
  - ASTHENIA [None]
  - CARDIOPULMONARY FAILURE [None]
  - DYSPNOEA [None]
  - PNEUMONIA BACTERIAL [None]
